FAERS Safety Report 7910494-2 (Version None)
Quarter: 2011Q4

REPORT INFORMATION
  Report Type: 
  Country: None (occurrence: None)
  Receive Date: 20111111
  Receipt Date: 20111104
  Transmission Date: 20120403
  Serious: Yes (Death, Hospitalization, Other)
  Sender: FDA-Public Use
  Company Number: PHHY2011ES83668

PATIENT
  Age: 61 Year
  Sex: Male

DRUGS (11)
  1. OMEPRAZOLE [Concomitant]
     Dosage: UNK UKN, UNK
  2. EMULIQUEN [Concomitant]
     Dosage: UNK UKN, UNK
  3. ACETAMINOPHEN [Concomitant]
     Dosage: UNK UKN, UNK
  4. PRIMPERAN TAB [Concomitant]
     Dosage: UNK UKN, UNK
  5. SUTENT [Suspect]
     Indication: GASTROINTESTINAL STROMAL TUMOUR
     Dosage: 25 MG, PER DAY
     Dates: start: 20100202, end: 20110914
  6. DEXAMETHASONE [Concomitant]
     Dosage: UNK UKN, UNK
  7. ENALAPRIL MALEATE [Concomitant]
     Dosage: UNK UKN, UNK
  8. ALDACTONE [Concomitant]
     Dosage: UNK UKN, UNK
  9. GLEEVEC [Suspect]
     Indication: GASTROINTESTINAL STROMAL TUMOUR
     Dosage: 400 MG, UNK
     Route: 048
     Dates: start: 20100202, end: 20110914
  10. MORPHINE SULFATE [Concomitant]
     Dosage: UNK UKN, UNK
  11. BOREA [Concomitant]
     Dosage: UNK UKN, UNK

REACTIONS (10)
  - CARDIO-RESPIRATORY ARREST [None]
  - ENDOCARDITIS STAPHYLOCOCCAL [None]
  - EROSIVE OESOPHAGITIS [None]
  - GASTROINTESTINAL STROMAL TUMOUR [None]
  - NEOPLASM MALIGNANT [None]
  - STAPHYLOCOCCAL SEPSIS [None]
  - SEPTIC SHOCK [None]
  - VOMITING [None]
  - SEPTIC EMBOLUS [None]
  - HIATUS HERNIA [None]
